FAERS Safety Report 24224792 (Version 1)
Quarter: 2024Q3

REPORT INFORMATION
  Report Type: Spontaneous
  Country: BR (occurrence: BR)
  Receive Date: 20240819
  Receipt Date: 20240819
  Transmission Date: 20241017
  Serious: Yes (Other)
  Sender: JOHNSON AND JOHNSON
  Company Number: BR-JNJFOC-20240829940

PATIENT
  Age: 45 Year
  Sex: Male

DRUGS (4)
  1. SPRAVATO [Interacting]
     Active Substance: ESKETAMINE
     Indication: Depression
  2. SPRAVATO [Interacting]
     Active Substance: ESKETAMINE
     Dosage: THERAPY DATES: 27/MAY/2024, 29/MAY/2024, 26/JUN/2024
     Dates: start: 20240527, end: 20240626
  3. RIVOTRIL [Concomitant]
     Active Substance: CLONAZEPAM
     Route: 065
     Dates: start: 20240625
  4. MIDAZOLAM [Concomitant]
     Active Substance: MIDAZOLAM
     Route: 065

REACTIONS (11)
  - Apnoea [Recovering/Resolving]
  - Hypoxia [Unknown]
  - Neuropathy peripheral [Unknown]
  - Depressed level of consciousness [Recovered/Resolved]
  - Respiratory depression [Unknown]
  - Asthenia [Unknown]
  - Dissociation [Unknown]
  - Somnolence [Unknown]
  - Tremor [Unknown]
  - Headache [Recovering/Resolving]
  - Drug interaction [Unknown]

NARRATIVE: CASE EVENT DATE: 20240501
